FAERS Safety Report 12051940 (Version 1)
Quarter: 2016Q1

REPORT INFORMATION
  Report Type: Report from Study
  Country: IT (occurrence: IT)
  Receive Date: 20160209
  Receipt Date: 20160209
  Transmission Date: 20160526
  Serious: Yes (Death, Hospitalization)
  Sender: FDA-Public Use
  Company Number: IT-ABBVIE-16P-083-1554271-00

PATIENT
  Age: 80 Year
  Sex: Male
  Weight: 53 kg

DRUGS (1)
  1. DUODOPA [Suspect]
     Active Substance: CARBIDOPA\LEVODOPA
     Indication: PARKINSON^S DISEASE
     Dosage: MD 10, CR 4, ED 3
     Route: 050
     Dates: start: 20141013, end: 20151214

REACTIONS (2)
  - Pneumonia aspiration [Fatal]
  - Death [Fatal]

NARRATIVE: CASE EVENT DATE: 20160114
